FAERS Safety Report 23599566 (Version 2)
Quarter: 2024Q1

REPORT INFORMATION
  Report Type: Spontaneous
  Country: JP (occurrence: JP)
  Receive Date: 20240306
  Receipt Date: 20240312
  Transmission Date: 20240410
  Serious: Yes (Death)
  Sender: FDA-Public Use
  Company Number: JP-GILEAD-2024-0663273

PATIENT
  Age: 93 Year
  Sex: Female

DRUGS (6)
  1. VEKLURY [Suspect]
     Active Substance: REMDESIVIR
     Indication: COVID-19
     Dosage: 2 VIALS
     Route: 041
     Dates: start: 20240221, end: 20240221
  2. ATORVASTATIN [Concomitant]
     Active Substance: ATORVASTATIN
  3. XARELTO [Concomitant]
     Active Substance: RIVAROXABAN
  4. LANSOPRAZOLE [Concomitant]
     Active Substance: LANSOPRAZOLE
  5. AMLODINE [AMLODIPINE] [Concomitant]
  6. CELECOXIB [Concomitant]
     Active Substance: CELECOXIB

REACTIONS (2)
  - Marasmus [Fatal]
  - Poor venous access [Unknown]

NARRATIVE: CASE EVENT DATE: 20240222
